FAERS Safety Report 22099383 (Version 1)
Quarter: 2023Q1

REPORT INFORMATION
  Report Type: Spontaneous
  Country: IT (occurrence: IT)
  Receive Date: 20230315
  Receipt Date: 20230315
  Transmission Date: 20230418
  Serious: Yes (Hospitalization)
  Sender: FDA-Public Use
  Company Number: None

PATIENT
  Age: 65 Year
  Sex: Female
  Weight: 73 kg

DRUGS (3)
  1. ABEMACICLIB [Suspect]
     Active Substance: ABEMACICLIB
     Indication: Inflammatory carcinoma of breast stage IV
     Dosage: 150 MG, BID
     Route: 048
     Dates: start: 20221216, end: 20230217
  2. NATEMILLE [Concomitant]
     Indication: Osteoporosis
     Dosage: 600 MG + 1.000 UI  X 1VOLTA/DIE
     Dates: start: 19700101
  3. LETROZOLE [Concomitant]
     Active Substance: LETROZOLE
     Indication: Inflammatory carcinoma of breast stage IV
     Dosage: UNK UNK, DAILY (2.5 X 1VOLTA/DIE)
     Route: 048
     Dates: start: 201405

REACTIONS (1)
  - Hepatitis acute [Recovering/Resolving]

NARRATIVE: CASE EVENT DATE: 20230217
